FAERS Safety Report 4596571-5 (Version None)
Quarter: 2005Q1

REPORT INFORMATION
  Report Type: 
  Country: None (occurrence: None)
  Receive Date: 20050228
  Receipt Date: 20050214
  Transmission Date: 20050727
  Serious: Yes (Death, Hospitalization)
  Sender: FDA-Public Use
  Company Number: 2005-BP-02243AU

PATIENT
  Age: 89 Year
  Sex: Female

DRUGS (16)
  1. MOBIC [Suspect]
     Dosage: 40 MG PO
     Route: 048
     Dates: start: 20040811, end: 20041006
  2. FUROSEMIDE [Suspect]
     Indication: CARDIAC FAILURE CONGESTIVE
     Dosage: 40 MG (40 MG, 1 TABLET ORALLY DAILY) PO
     Route: 048
     Dates: start: 20030319
  3. RAMIPRIL [Suspect]
     Indication: CARDIAC FAILURE CONGESTIVE
     Dosage: 5 MG (5 MG, 1 TABLET ORALLY DAILY) PO
     Route: 048
  4. MS CONTIN [Suspect]
     Dosage: PO
     Dates: start: 20040929, end: 20041004
  5. ASTRIX (ACETYLSALICYLIC ACID) (KA) [Concomitant]
  6. FERRO-GRADUMET (IRON) (TAD) [Concomitant]
  7. FOSAMAX (ALENDRONATE SODIUM) (TA) [Concomitant]
  8. OROXINE (LEVOTHYROXINE SODIUM) (TA) [Concomitant]
  9. PARACETAMOL (PARACETAMOL) (TA) [Concomitant]
  10. PERSANTIN (DIPYRIDAMOLE) (KA) [Concomitant]
  11. SOMAC (PANTOPRAZOLE SODIUM) (TA) [Concomitant]
  12. ZYLOPRIM (ALLOPURINOL) (TA) [Concomitant]
  13. BRICANYL (TERBUTALINE SULFATE (AEM) [Concomitant]
  14. OXIS TURBUHALER (EFORMOTEROL) (AEM) [Concomitant]
  15. PULMICORT (BUDESONIDE) (AEM) [Concomitant]
  16. DI-GESIC (DI-GESIC) (KA) [Concomitant]

REACTIONS (5)
  - BLOOD CREATININE INCREASED [None]
  - CONFUSIONAL STATE [None]
  - DELIRIUM [None]
  - HYPERKALAEMIA [None]
  - RENAL FAILURE [None]
